FAERS Safety Report 8543204-9 (Version None)
Quarter: 2012Q3

REPORT INFORMATION
  Report Type: 
  Country: None (occurrence: None)
  Receive Date: 20120716
  Receipt Date: 20120703
  Transmission Date: 20120928
  Serious: Yes (Hospitalization, Other)
  Sender: FDA-Public Use
  Company Number: 2012AP002046

PATIENT
  Age: 28 Month
  Sex: Male

DRUGS (2)
  1. OXCARBAZEPINE [Suspect]
     Indication: PARTIAL SEIZURES
  2. LEVETIRACETAM [Suspect]
     Indication: PARTIAL SEIZURES

REACTIONS (15)
  - APHASIA [None]
  - TREMOR [None]
  - CHOREA [None]
  - MOOD SWINGS [None]
  - AGGRESSION [None]
  - MUSCLE TWITCHING [None]
  - FATIGUE [None]
  - CRYING [None]
  - ABASIA [None]
  - CYANOSIS [None]
  - CLUMSINESS [None]
  - OFF LABEL USE [None]
  - GAIT DISTURBANCE [None]
  - ALTERED STATE OF CONSCIOUSNESS [None]
  - ENCEPHALITIS AUTOIMMUNE [None]
